FAERS Safety Report 8240983-5 (Version None)
Quarter: 2012Q1

REPORT INFORMATION
  Report Type: 
  Country: None (occurrence: None)
  Receive Date: 20120328
  Receipt Date: 20120314
  Transmission Date: 20120608
  Serious: Yes (Other)
  Sender: FDA-Public Use
  Company Number: US-MYLANLABS-2012S1006110

PATIENT
  Age: 65 Year
  Sex: Male

DRUGS (1)
  1. ZOLPIDEM [Suspect]
     Indication: INSOMNIA
     Dosage: ACCIDENTALLY TOOK TWO 10MG TABLETS IN THE MORNING
     Route: 048

REACTIONS (4)
  - ACCIDENTAL EXPOSURE [None]
  - AUTOMATISM [None]
  - MENTAL STATUS CHANGES [None]
  - AMNESIA [None]
